FAERS Safety Report 15861142 (Version 2)
Quarter: 2019Q1

REPORT INFORMATION
  Report Type: Spontaneous
  Country: PT (occurrence: PT)
  Receive Date: 20190124
  Receipt Date: 20190208
  Transmission Date: 20190417
  Serious: Yes (Death)
  Sender: FDA-Public Use
  Company Number: PT-TEVA-2019-PT-1002562

PATIENT
  Age: 84 Year

DRUGS (7)
  1. BISOPROLOL [Concomitant]
     Active Substance: BISOPROLOL
  2. PROPOFOL. [Concomitant]
     Active Substance: PROPOFOL
  3. ALFENTANIL. [Concomitant]
     Active Substance: ALFENTANIL
  4. HALOPERIDOL. [Concomitant]
     Active Substance: HALOPERIDOL
  5. ROCURONIUM BROMIDE. [Concomitant]
     Active Substance: ROCURONIUM BROMIDE
  6. DEXMEDETOMIDINE. [Suspect]
     Active Substance: DEXMEDETOMIDINE
     Indication: SEDATION
     Route: 042
     Dates: start: 20181218, end: 20181223
  7. QUETIAPINE. [Concomitant]
     Active Substance: QUETIAPINE

REACTIONS (1)
  - Hyperthermia malignant [Fatal]
